FAERS Safety Report 19347415 (Version 1)
Quarter: 2021Q2

REPORT INFORMATION
  Report Type: Spontaneous
  Country: IT (occurrence: IT)
  Receive Date: 20210531
  Receipt Date: 20210531
  Transmission Date: 20210717
  Serious: Yes (Death)
  Sender: FDA-Public Use
  Company Number: IT-CELLTRION INC.-2021IT007023

PATIENT

DRUGS (3)
  1. BENDAMUSTINE [Suspect]
     Active Substance: BENDAMUSTINE
     Indication: FOLLICULAR LYMPHOMA
     Dosage: SIX CYCLES OF BR INDUCTION CHEMOTHERAPY
  2. RITUXIMAB (UNKNOWN) [Suspect]
     Active Substance: RITUXIMAB
     Indication: FOLLICULAR LYMPHOMA
     Dosage: SIX CYCLES OF BR INDUCTION CHEMOTHERAPY
  3. RITUXIMAB (UNKNOWN) [Suspect]
     Active Substance: RITUXIMAB
     Dosage: MAINTENANCE FOLLOWING

REACTIONS (5)
  - Gastrointestinal haemorrhage [Fatal]
  - Progressive multifocal leukoencephalopathy [Fatal]
  - Therapy partial responder [Unknown]
  - Lymphoma [Fatal]
  - Death [Fatal]
